FAERS Safety Report 4661188-0 (Version None)
Quarter: 2005Q2

REPORT INFORMATION
  Report Type: 
  Country: None (occurrence: None)
  Receive Date: 20050425
  Receipt Date: 20050203
  Transmission Date: 20051028
  Serious: Yes (Hospitalization)
  Sender: FDA-Public Use
  Company Number: US108790

PATIENT
  Age: 41 Year
  Sex: Male

DRUGS (9)
  1. SENSIPAR [Suspect]
     Indication: HYPERPARATHYROIDISM SECONDARY
     Dosage: 90 MG, 1 IN 1 DAYS, PO
     Route: 048
     Dates: start: 20041109, end: 20050108
  2. SERTRALINE HYDROCHLORIDE [Suspect]
     Dosage: 100 MG
  3. METOCLOPRAMIDE [Suspect]
     Dosage: 40 MG
  4. CLONIDINE [Concomitant]
  5. THEOPHYLLINE [Concomitant]
  6. PHOSLO [Concomitant]
  7. SEVELAMER HCL [Concomitant]
  8. IPRATROPIUM BROMIDE [Concomitant]
  9. RANITIDINE [Concomitant]

REACTIONS (3)
  - CONVULSION [None]
  - FLUID OVERLOAD [None]
  - MYOCLONUS [None]
